FAERS Safety Report 24757190 (Version 1)
Quarter: 2024Q4

REPORT INFORMATION
  Report Type: Spontaneous
  Country: CA (occurrence: CA)
  Receive Date: 20241220
  Receipt Date: 20241220
  Transmission Date: 20250115
  Serious: Yes (Life-Threatening, Hospitalization)
  Sender: CSL BEHRING
  Company Number: CA-BEH-2024187358

PATIENT
  Age: 67 Year
  Sex: Female

DRUGS (8)
  1. HUMAN C1-ESTERASE INHIBITOR [Suspect]
     Active Substance: HUMAN C1-ESTERASE INHIBITOR
     Indication: Angioedema
     Dosage: 1000 IU
     Route: 065
  2. HUMAN C1-ESTERASE INHIBITOR [Suspect]
     Active Substance: HUMAN C1-ESTERASE INHIBITOR
     Dosage: 1500 IU
     Route: 065
  3. DIPHENHYDRAMINE [Suspect]
     Active Substance: DIPHENHYDRAMINE
     Indication: Angioedema
     Dosage: 50 ML
     Route: 042
  4. EPINEPHRINE [Suspect]
     Active Substance: EPINEPHRINE
     Indication: Angioedema
     Dosage: UNK
     Route: 065
  5. ICATIBANT ACETATE [Suspect]
     Active Substance: ICATIBANT ACETATE
     Indication: Angioedema
     Dosage: 30 MG
     Route: 058
  6. METHYLPREDNISOLONE [Suspect]
     Active Substance: METHYLPREDNISOLONE
     Indication: Angioedema
     Dosage: UNK
     Route: 042
  7. RAMIPRIL [Suspect]
     Active Substance: RAMIPRIL
     Indication: Hypertension
     Dosage: UNK
     Route: 065
  8. PERINDOPRIL [Concomitant]
     Active Substance: PERINDOPRIL

REACTIONS (2)
  - Angioedema [Recovered/Resolved]
  - Off label use [Recovered/Resolved]
